FAERS Safety Report 8948377 (Version 1)
Quarter: 2012Q4

REPORT INFORMATION
  Report Type: 
  Country: MX (occurrence: MX)
  Receive Date: 20121206
  Receipt Date: 20121206
  Transmission Date: 20130627
  Serious: Yes (Other)
  Sender: FDA-Public Use
  Company Number: PHHY2012MX111409

PATIENT
  Age: 80 Year
  Sex: Male

DRUGS (6)
  1. EXFORGE [Suspect]
     Indication: HYPERTENSION
     Dosage: 1.5 DF daily
     Route: 048
     Dates: start: 20120709
  2. METOPROLOL [Concomitant]
     Indication: HYPERTENSION
     Dosage: 1 DF, QOD
     Dates: start: 2004
  3. ESPIRONOLACTON [Concomitant]
     Indication: CARDIAC DISORDER
     Dosage: 1 DF daily
     Dates: start: 2004
  4. ACETYLSALICYLIC ACID [Concomitant]
     Indication: ANTICOAGULANT THERAPY
     Dosage: 0.5 DF, UNK
     Dates: start: 2004
  5. SUPACID [Concomitant]
     Indication: GASTRITIS
     Dosage: 1 DF daily
     Dates: start: 2008
  6. METEOSPASMYL [Concomitant]
     Indication: GASTRITIS
     Dosage: 1 DF, QD

REACTIONS (1)
  - Increased upper airway secretion [Unknown]
